FAERS Safety Report 4530739-9 (Version None)
Quarter: 2004Q4

REPORT INFORMATION
  Report Type: 
  Country: None (occurrence: None)
  Receive Date: 20041217
  Receipt Date: 20041006
  Transmission Date: 20050328
  Serious: Yes (Other)
  Sender: FDA-Public Use
  Company Number: DE-GLAXOSMITHKLINE-D0044880A

PATIENT
  Age: 73 Year
  Sex: Male
  Weight: 80 kg

DRUGS (1)
  1. AUGMENTIN '250' [Suspect]
     Indication: URINARY TRACT INFECTION BACTERIAL
     Route: 048
     Dates: start: 20040809, end: 20040824

REACTIONS (27)
  - ARTHRALGIA [None]
  - BLOOD ALKALINE PHOSPHATASE INCREASED [None]
  - BLOOD PRESSURE FLUCTUATION [None]
  - CHILLS [None]
  - CHROMATURIA [None]
  - CONSTIPATION [None]
  - DEPRESSION [None]
  - DIARRHOEA [None]
  - DIPLOPIA [None]
  - DIZZINESS [None]
  - EXANTHEM [None]
  - FAECES DISCOLOURED [None]
  - FATIGUE [None]
  - GAMMA-GLUTAMYLTRANSFERASE INCREASED [None]
  - GASTROINTESTINAL PAIN [None]
  - HEPATITIS CHOLESTATIC [None]
  - HEPATOMEGALY [None]
  - HYPERBILIRUBINAEMIA [None]
  - JAUNDICE [None]
  - NAUSEA [None]
  - NEUROLOGICAL SYMPTOM [None]
  - OCULAR ICTERUS [None]
  - PRURITUS [None]
  - SLEEP DISORDER [None]
  - TRANSAMINASES INCREASED [None]
  - VISION BLURRED [None]
  - WEIGHT DECREASED [None]
